FAERS Safety Report 7954488-X (Version None)
Quarter: 2011Q4

REPORT INFORMATION
  Report Type: 
  Country: None (occurrence: None)
  Receive Date: 20111202
  Receipt Date: 20111123
  Transmission Date: 20120403
  Serious: Yes (Death, Hospitalization, Other)
  Sender: FDA-Public Use
  Company Number: CA-JNJFOC-20111103232

PATIENT
  Sex: Female
  Weight: 51 kg

DRUGS (1)
  1. REMICADE [Suspect]
     Indication: CROHN'S DISEASE
     Dates: start: 20090101

REACTIONS (10)
  - EAR PAIN [None]
  - URINARY TRACT INFECTION [None]
  - THROMBOSIS [None]
  - LUNG CANCER METASTATIC [None]
  - PNEUMONIA [None]
  - URINARY BLADDER HAEMORRHAGE [None]
  - BRONCHITIS [None]
  - HEADACHE [None]
  - HYPOTENSION [None]
  - METASTATIC LYMPHOMA [None]
